FAERS Safety Report 9641819 (Version 2)
Quarter: 2013Q4

REPORT INFORMATION
  Report Type: Spontaneous
  Country: IT (occurrence: None)
  Receive Date: 20131021
  Receipt Date: 20131227
  Transmission Date: 20140711
  Serious: Yes (Hospitalization)
  Sender: FDA-Public Use
  Company Number: AUR-APL-2013-08532

PATIENT
  Age: 80 Year
  Sex: Female

DRUGS (5)
  1. ATENOLOL (ATENOLOL) [Suspect]
     Indication: PRODUCT USED FOR UNKNOWN INDICATION
     Dosage: 100 MG, 1 IN 1 D
     Route: 048
     Dates: start: 20120811, end: 20130810
  2. LANOXIN [Suspect]
     Indication: PRODUCT USED FOR UNKNOWN INDICATION
     Dosage: 1 DOSAGE FORMS, 1 IN 1 D
     Route: 048
     Dates: start: 20120811, end: 20130810
  3. CAPROVEL [Concomitant]
  4. LASITONE [Concomitant]
  5. COUMADIN [Concomitant]

REACTIONS (2)
  - Bradycardia [None]
  - Syncope [None]
